FAERS Safety Report 26176402 (Version 1)
Quarter: 2025Q4

REPORT INFORMATION
  Report Type: Spontaneous
  Country: CN (occurrence: CN)
  Receive Date: 20251218
  Receipt Date: 20251218
  Transmission Date: 20260118
  Serious: Yes (Hospitalization)
  Sender: ELI LILLY AND COMPANY
  Company Number: CN-ELI_LILLY_AND_COMPANY-CN202512013023

PATIENT
  Age: 58 Year
  Sex: Male
  Weight: 75 kg

DRUGS (2)
  1. PEMETREXED [Suspect]
     Active Substance: PEMETREXED
     Indication: Hepatic cancer
     Dosage: 500 MG, SINGLE (ONCE A DAY)
     Route: 041
     Dates: start: 20251024, end: 20251024
  2. PEMETREXED [Suspect]
     Active Substance: PEMETREXED
     Dosage: 100 MG, SINGLE (ONCE A DAY)
     Route: 041
     Dates: start: 20251024, end: 20251024

REACTIONS (12)
  - Liver injury [Recovering/Resolving]
  - Gastrointestinal disorder [Recovering/Resolving]
  - Myelosuppression [Recovering/Resolving]
  - Rash [Recovering/Resolving]
  - Salivary hypersecretion [Recovering/Resolving]
  - Hypokalaemia [Recovering/Resolving]
  - Acne [Recovering/Resolving]
  - Nausea [Recovering/Resolving]
  - Vomiting [Recovering/Resolving]
  - Decreased appetite [Recovering/Resolving]
  - Fatigue [Recovering/Resolving]
  - Feeling abnormal [Recovering/Resolving]

NARRATIVE: CASE EVENT DATE: 20251027
